FAERS Safety Report 7969804-2 (Version None)
Quarter: 2011Q4

REPORT INFORMATION
  Report Type: 
  Country: None (occurrence: None)
  Receive Date: 20111212
  Receipt Date: 20111130
  Transmission Date: 20120403
  Serious: Yes (Hospitalization)
  Sender: FDA-Public Use
  Company Number: US-BAYER-2011-000688

PATIENT
  Age: 26 Year
  Sex: Female
  Weight: 90.703 kg

DRUGS (22)
  1. NORETHINDRONE [Concomitant]
     Dosage: UNK UNK, QD
     Route: 048
     Dates: start: 20080725
  2. AMOXICILLIN [Concomitant]
     Dosage: 500 MG, UNK
     Route: 048
  3. DAYPRO [Concomitant]
     Dosage: 600 MG, UNK
  4. NAPROSYN [Concomitant]
     Dosage: 500 MG, UNK
     Route: 048
  5. ULTRAM [Concomitant]
     Dosage: 50 MG, UNK
     Route: 048
  6. LORTAB [Concomitant]
     Route: 048
  7. YAZ [Suspect]
     Indication: CONTRACEPTION
     Dosage: UNK
     Dates: start: 20070901
  8. AUGMENTIN [Concomitant]
     Dosage: 500 MG, UNK
     Route: 048
  9. DIFLUCAN [Concomitant]
     Dosage: 150 MG, UNK
     Route: 048
  10. LAMISIL [Concomitant]
     Dosage: 250 MG, UNK
     Route: 048
  11. MEDROL [Concomitant]
     Dosage: 4 MG, UNK
     Route: 048
  12. NYSTATIN [Concomitant]
  13. MAXALT-MLT [Concomitant]
     Dosage: 10 MG, UNK
  14. IBUPROFEN [Concomitant]
     Dosage: 800 MG, UNK
     Route: 048
  15. SOMA [Concomitant]
     Dosage: 350 MG, UNK
     Route: 048
  16. SEPTRA DS [Concomitant]
     Indication: CYST
     Dosage: UNK
     Dates: start: 20081001
  17. YAZ [Suspect]
     Indication: PREMENSTRUAL SYNDROME
  18. ZANTAC [Concomitant]
     Dosage: 150 MG, UNK
     Route: 048
  19. PREDNISONE TAB [Concomitant]
     Dosage: 20 MG, UNK
     Route: 048
  20. CIPROFLOXACIN [Concomitant]
     Dosage: 500 MG, UNK
     Route: 048
  21. PHENERGAN VC W/ CODEINE [Concomitant]
  22. BACTRIM DS [Concomitant]
     Dosage: 800 UNK, UNK
     Route: 048

REACTIONS (4)
  - SCAR [None]
  - INJURY [None]
  - CHOLECYSTITIS CHRONIC [None]
  - CHOLELITHIASIS [None]
